APPROVED DRUG PRODUCT: TAXOTERE
Active Ingredient: DOCETAXEL
Strength: 80MG/4ML (20MG/ML)
Dosage Form/Route: INJECTABLE;INJECTION
Application: N020449 | Product #004
Applicant: SANOFI AVENTIS US LLC
Approved: Aug 2, 2010 | RLD: Yes | RS: No | Type: DISCN